FAERS Safety Report 4615829-4 (Version None)
Quarter: 2005Q2

REPORT INFORMATION
  Report Type: 
  Country: None (occurrence: None)
  Receive Date: 20050308
  Receipt Date: 20040610
  Transmission Date: 20051028
  Serious: Yes (Hospitalization)
  Sender: FDA-Public Use
  Company Number: 200418318BWH

PATIENT
  Sex: Female

DRUGS (2)
  1. CIPRO IV [Suspect]
     Dosage: INTRAVENOUS
     Route: 042
     Dates: start: 20040420
  2. CIPROFLOXACIN HYDROCHLORIDE [Suspect]
     Dosage: ORAL
     Route: 048

REACTIONS (4)
  - ADVERSE DRUG REACTION [None]
  - DIARRHOEA [None]
  - TENDON DISORDER [None]
  - VISION BLURRED [None]
